FAERS Safety Report 5262907-5 (Version None)
Quarter: 2007Q1

REPORT INFORMATION
  Report Type: 
  Country: None (occurrence: None)
  Receive Date: 20070312
  Receipt Date: 20070228
  Transmission Date: 20070707
  Serious: Yes (Hospitalization, Other)
  Sender: FDA-Public Use
  Company Number: 2006UW08473

PATIENT
  Sex: Female
  Weight: 63.6 kg

DRUGS (4)
  1. SEROQUEL [Suspect]
     Indication: BIPOLAR DISORDER
     Route: 048
     Dates: start: 19980101
  2. GEODON [Concomitant]
     Dates: start: 20050101
  3. HALDOL [Concomitant]
     Dates: start: 19980101, end: 20060101
  4. THORAZINE [Concomitant]
     Dates: start: 19750101

REACTIONS (3)
  - BACK DISORDER [None]
  - NEUROLEPTIC MALIGNANT SYNDROME [None]
  - PANCREATITIS [None]
